FAERS Safety Report 8880568 (Version 1)
Quarter: 2012Q4

REPORT INFORMATION
  Report Type: 
  Country: US (occurrence: US)
  Receive Date: 20121031
  Receipt Date: 20121031
  Transmission Date: 20130627
  Serious: No
  Sender: FDA-Public Use
  Company Number: US-BAYER-2012-111876

PATIENT
  Age: 67 Year
  Sex: Male
  Weight: 108.84 kg

DRUGS (5)
  1. ALEVE CAPLET/TABLET,MIDOL EXTENDED RELIEF CAPLET [Suspect]
     Indication: MUSCLE PAIN
     Dosage: 1 DF, ONCE
     Route: 048
     Dates: start: 20121023, end: 20121023
  2. PROSCAR [Concomitant]
  3. CRESTOR [Concomitant]
  4. TRAZODONE [Concomitant]
  5. EFFEXOR [Concomitant]

REACTIONS (4)
  - Lacrimation increased [Not Recovered/Not Resolved]
  - Sinus congestion [Not Recovered/Not Resolved]
  - Sneezing [Not Recovered/Not Resolved]
  - Nasal obstruction [Not Recovered/Not Resolved]
